FAERS Safety Report 13768321 (Version 10)
Quarter: 2021Q1

REPORT INFORMATION
  Report Type: Report from Study
  Country: US (occurrence: US)
  Receive Date: 20170719
  Receipt Date: 20210130
  Transmission Date: 20210419
  Serious: Yes (Other)
  Sender: FDA-Public Use
  Company Number: PHEH2017US022094

PATIENT
  Age: 7 Year
  Sex: Female
  Weight: 10.9 kg

DRUGS (3)
  1. AFINITOR [Suspect]
     Active Substance: EVEROLIMUS
     Dosage: 7.5 MG, QD
     Route: 048
  2. AFINITOR [Suspect]
     Active Substance: EVEROLIMUS
     Indication: ASTROCYTOMA, LOW GRADE
     Dosage: 10 MG, QD
     Route: 048
     Dates: start: 20170613
  3. AFINITOR [Suspect]
     Active Substance: EVEROLIMUS
     Dosage: 10 MG, QD
     Route: 048

REACTIONS (15)
  - Toe walking [Unknown]
  - Astrocytoma, low grade [Unknown]
  - Hypersensitivity [Unknown]
  - Vaginal haemorrhage [Recovered/Resolved]
  - Glossodynia [Recovering/Resolving]
  - Stomatitis [Recovering/Resolving]
  - Neoplasm progression [Unknown]
  - Eye disorder [Unknown]
  - Therapeutic response decreased [Unknown]
  - Blood cholesterol increased [Unknown]
  - Mouth ulceration [Unknown]
  - Mesenteric cyst [Unknown]
  - Menstruation irregular [Unknown]
  - Decreased appetite [Not Recovered/Not Resolved]
  - Drug level abnormal [Unknown]

NARRATIVE: CASE EVENT DATE: 20170620
